FAERS Safety Report 22000919 (Version 2)
Quarter: 2023Q2

REPORT INFORMATION
  Report Type: Spontaneous
  Country: US (occurrence: US)
  Receive Date: 20230216
  Receipt Date: 20230404
  Transmission Date: 20230721
  Serious: Yes (Other)
  Sender: FDA-Public Use
  Company Number: US-BRISTOL-MYERS SQUIBB COMPANY-2023-022957

PATIENT
  Age: 59 Year
  Sex: Female

DRUGS (1)
  1. ORENCIA [Suspect]
     Active Substance: ABATACEPT
     Indication: Rheumatoid arthritis
     Dosage: ORENCIA CLICKJET  AUTOINJ
     Route: 058
     Dates: start: 20220726

REACTIONS (3)
  - Rheumatoid arthritis [Recovering/Resolving]
  - Arthropathy [Unknown]
  - Rash [Recovering/Resolving]
